FAERS Safety Report 7940541-3 (Version None)
Quarter: 2011Q4

REPORT INFORMATION
  Report Type: 
  Country: None (occurrence: None)
  Receive Date: 20111114
  Receipt Date: 20110222
  Transmission Date: 20120403
  Serious: Yes (Other)
  Sender: FDA-Public Use
  Company Number: 2011S1000109

PATIENT
  Sex: Male
  Weight: 97.5 kg

DRUGS (6)
  1. COMTAN [Concomitant]
  2. SINEMET [Concomitant]
  3. AZILECT [Concomitant]
  4. PERCOCET [Concomitant]
  5. CUBICIN [Suspect]
     Indication: ARTHRITIS BACTERIAL
     Dosage: 6 MG/KG;QD;IV
     Route: 042
  6. CITALOPRAM HYDROBROMIDE [Concomitant]

REACTIONS (1)
  - EOSINOPHILIC PNEUMONIA [None]
